FAERS Safety Report 6600007-X (Version None)
Quarter: 2010Q1

REPORT INFORMATION
  Report Type: 
  Country: None (occurrence: None)
  Receive Date: 20100217
  Receipt Date: 20100201
  Transmission Date: 20100710
  Serious: Yes (Other)
  Sender: FDA-Public Use
  Company Number: DSA_42557_2010

PATIENT
  Age: 6 Month
  Sex: Female

DRUGS (1)
  1. ENALAPRIL MALEATE [Suspect]
     Indication: CARDIAC FAILURE CHRONIC
     Dosage: (DF ORAL)
     Route: 048

REACTIONS (1)
  - COUGH [None]
